FAERS Safety Report 15483129 (Version 5)
Quarter: 2019Q1

REPORT INFORMATION
  Report Type: Spontaneous
  Country: HU (occurrence: HU)
  Receive Date: 20181010
  Receipt Date: 20190128
  Transmission Date: 20190417
  Serious: Yes (Other)
  Sender: FDA-Public Use
  Company Number: HU-PFIZER INC-2018405129

PATIENT
  Age: 66 Year
  Sex: Male

DRUGS (3)
  1. MEDROL [Suspect]
     Active Substance: METHYLPREDNISOLONE
     Indication: PROTEINURIA
  2. MEDROL [Suspect]
     Active Substance: METHYLPREDNISOLONE
     Indication: GLOMERULAR FILTRATION RATE ABNORMAL
     Dosage: 1 MG/KG, UNK
  3. MEDROL [Suspect]
     Active Substance: METHYLPREDNISOLONE
     Indication: URINE ANALYSIS ABNORMAL

REACTIONS (3)
  - Urinary retention [Not Recovered/Not Resolved]
  - Steroid diabetes [Unknown]
  - Respiratory tract infection [Unknown]

NARRATIVE: CASE EVENT DATE: 201401
